FAERS Safety Report 21542396 (Version 1)
Quarter: 2022Q4

REPORT INFORMATION
  Report Type: Spontaneous
  Country: US (occurrence: US)
  Receive Date: 20221102
  Receipt Date: 20221102
  Transmission Date: 20230112
  Serious: Yes (Hospitalization, Other)
  Sender: FDA-Public Use
  Company Number: US-GLAXOSMITHKLINE-US2022154439

PATIENT

DRUGS (1)
  1. ADVAIR DISKUS [Suspect]
     Active Substance: FLUTICASONE PROPIONATE\SALMETEROL XINAFOATE
     Indication: Asthma
     Dosage: 1 PUFF(S), BID, 250/50  ONE PUFF TWICE A DAY
     Route: 055
     Dates: start: 1992

REACTIONS (5)
  - Heart valve replacement [Recovered/Resolved with Sequelae]
  - Cardiac valve disease [Recovered/Resolved with Sequelae]
  - COVID-19 [Recovered/Resolved with Sequelae]
  - Cholelithiasis [Recovered/Resolved]
  - Bladder cancer [Recovered/Resolved with Sequelae]

NARRATIVE: CASE EVENT DATE: 20130314
